FAERS Safety Report 19608715 (Version 1)
Quarter: 2021Q3

REPORT INFORMATION
  Report Type: Spontaneous
  Country: US (occurrence: US)
  Receive Date: 20210726
  Receipt Date: 20210726
  Transmission Date: 20211014
  Serious: Yes (Other)
  Sender: FDA-Public Use
  Company Number: US-GLAXOSMITHKLINE-US2021GSK157116

PATIENT
  Sex: Female

DRUGS (4)
  1. RANITIDINE. [Suspect]
     Active Substance: RANITIDINE
     Indication: URTICARIA
     Dosage: 300 MG, QD
     Route: 065
     Dates: start: 200804, end: 201901
  2. RANITIDINE. [Suspect]
     Active Substance: RANITIDINE
     Indication: SKIN DISORDER
  3. RANITIDINE. [Suspect]
     Active Substance: RANITIDINE
     Indication: SKIN DISORDER
  4. RANITIDINE. [Suspect]
     Active Substance: RANITIDINE
     Indication: URTICARIA
     Dosage: 300 MG, QD
     Route: 065
     Dates: start: 200804, end: 201901

REACTIONS (1)
  - Breast cancer [Unknown]
